FAERS Safety Report 9687479 (Version 1)
Quarter: 2013Q4

REPORT INFORMATION
  Report Type: Report from Study
  Country: US (occurrence: US)
  Receive Date: 20131114
  Receipt Date: 20131114
  Transmission Date: 20140711
  Serious: Yes (Other)
  Sender: FDA-Public Use
  Company Number: US-ROCHE-1298699

PATIENT
  Age: 71 Year
  Sex: 0

DRUGS (1)
  1. RITUXIMAB [Suspect]
     Indication: CHRONIC LYMPHOCYTIC LEUKAEMIA
     Route: 042
     Dates: start: 20130624, end: 20130708

REACTIONS (5)
  - Febrile neutropenia [Recovered/Resolved]
  - Cytomegalovirus infection [Recovered/Resolved]
  - Haemolytic anaemia [Recovered/Resolved]
  - Thrombocytopenia [Recovered/Resolved]
  - Mental status changes [Recovered/Resolved]
